FAERS Safety Report 5042851-9 (Version None)
Quarter: 2006Q2

REPORT INFORMATION
  Report Type: 
  Country: None (occurrence: None)
  Receive Date: 20060627
  Receipt Date: 20060613
  Transmission Date: 20061013
  Serious: Yes (Hospitalization)
  Sender: FDA-Public Use
  Company Number: 2006075179

PATIENT
  Age: 79 Year
  Sex: Female

DRUGS (1)
  1. AZITHROMYCIN [Suspect]
     Dosage: 50  MG, ORAL
     Route: 048

REACTIONS (2)
  - FALL [None]
  - HEPATIC FUNCTION ABNORMAL [None]
